FAERS Safety Report 13717211 (Version 1)
Quarter: 2017Q3

REPORT INFORMATION
  Report Type: Spontaneous
  Country: US (occurrence: US)
  Receive Date: 20170703
  Receipt Date: 20170703
  Transmission Date: 20171127
  Serious: No
  Sender: FDA-Public Use
  Company Number: None

PATIENT
  Age: 23 Year
  Sex: Female

DRUGS (1)
  1. DUPIXENT [Suspect]
     Active Substance: DUPILUMAB
     Indication: PRODUCT USED FOR UNKNOWN INDICATION
     Dosage: 300MG ON DAY ONE THEN ON DAY 15 SQ
     Route: 058
     Dates: start: 20170623

REACTIONS (3)
  - Nausea [None]
  - Visual impairment [None]
  - Fatigue [None]

NARRATIVE: CASE EVENT DATE: 20170627
